FAERS Safety Report 6745936-1 (Version None)
Quarter: 2010Q2

REPORT INFORMATION
  Report Type: 
  Country: None (occurrence: None)
  Receive Date: 20100528
  Receipt Date: 20100514
  Transmission Date: 20101027
  Serious: Yes (Hospitalization)
  Sender: FDA-Public Use
  Company Number: US-ELI_LILLY_AND_COMPANY-US200909000573

PATIENT
  Sex: Female
  Weight: 76.19 kg

DRUGS (8)
  1. FORTEO [Suspect]
     Indication: OSTEOPOROSIS
     Dosage: 20 UG, DAILY (1/D)
     Route: 058
     Dates: start: 20090401
  2. SYNTHROID [Concomitant]
  3. DETROL LA [Concomitant]
  4. SIMVASTATIN [Concomitant]
  5. METFORMIN HYDROCHLORIDE [Concomitant]
  6. MULTI-VITAMIN [Concomitant]
  7. CALCIUM CARBONATE [Concomitant]
  8. ALLEGRA [Concomitant]

REACTIONS (1)
  - COLON CANCER [None]
